FAERS Safety Report 9744466 (Version 2)
Quarter: 2013Q4

REPORT INFORMATION
  Report Type: Report from Study
  Country: JP (occurrence: JP)
  Receive Date: 20131210
  Receipt Date: 20131210
  Transmission Date: 20140711
  Serious: Yes (Hospitalization)
  Sender: FDA-Public Use
  Company Number: JP-TEVA-322324ISR

PATIENT
  Age: 74 Year
  Sex: Female
  Weight: 55.6 kg

DRUGS (10)
  1. BENDAMUSTINE [Suspect]
     Indication: B-CELL LYMPHOMA
     Dosage: 90 MG/M2 DAILY;
     Route: 042
     Dates: start: 20120131, end: 20120201
  2. RITUXIMAB [Suspect]
     Indication: B-CELL LYMPHOMA
     Dosage: 375 MG/M2 DAILY;
     Route: 042
     Dates: start: 20120130, end: 20120130
  3. KETOPROFEN [Concomitant]
     Indication: PERIARTHRITIS
     Dates: start: 200711
  4. PIRENOXINE [Concomitant]
     Indication: CATARACT
     Dates: start: 200711
  5. GRANISETRON HYDROCHLORIDE [Concomitant]
     Indication: PROPHYLAXIS OF NAUSEA AND VOMITING
  6. DEXAMETHASONE SODIUM PHOSPHATE [Concomitant]
     Indication: PROPHYLAXIS OF NAUSEA AND VOMITING
     Dates: start: 20120131, end: 20120201
  7. HYDROCORTISONE SODIUM SUCCINATE [Concomitant]
     Indication: PROPHYLAXIS OF NAUSEA AND VOMITING
     Dates: start: 20120130, end: 20120130
  8. ACETAMINOPHEN [Concomitant]
     Indication: DRUG TOXICITY PROPHYLAXIS
     Dates: start: 20120130, end: 20120130
  9. CHLORPHENIRAMINE MALEATE [Concomitant]
     Indication: DRUG TOXICITY PROPHYLAXIS
     Dates: start: 20120130, end: 20120130
  10. METHYL SALICYLATE GLYCYRRHETINIC ACID [Concomitant]
     Indication: PERIARTHRITIS
     Dates: start: 200711

REACTIONS (2)
  - Tumour lysis syndrome [Recovered/Resolved]
  - Breast cancer [Recovering/Resolving]
